FAERS Safety Report 9628459 (Version 3)
Quarter: 2013Q4

REPORT INFORMATION
  Report Type: Spontaneous
  Country: US (occurrence: US)
  Receive Date: 20131017
  Receipt Date: 20131112
  Transmission Date: 20140711
  Serious: No
  Sender: FDA-Public Use
  Company Number: US-PFIZER INC-2013293907

PATIENT
  Age: 54 Year
  Sex: Female
  Weight: 41.3 kg

DRUGS (1)
  1. NICOTROL INHALER [Suspect]
     Indication: SMOKING CESSATION THERAPY
     Dosage: UNK
     Dates: start: 20131011

REACTIONS (2)
  - Abdominal discomfort [Unknown]
  - Product quality issue [Unknown]
